FAERS Safety Report 11703033 (Version 4)
Quarter: 2016Q3

REPORT INFORMATION
  Report Type: Spontaneous
  Country: US (occurrence: US)
  Receive Date: 20151105
  Receipt Date: 20160923
  Transmission Date: 20161109
  Serious: Yes (Life-Threatening, Hospitalization, Congenital Anomaly, Other)
  Sender: FDA-Public Use
  Company Number: PHEH2015US022556

PATIENT
  Sex: Female

DRUGS (2)
  1. ZOFRAN [Suspect]
     Active Substance: ONDANSETRON HYDROCHLORIDE
     Indication: FOETAL EXPOSURE DURING PREGNANCY
     Dosage: MOTHER DOSE: 4 MG, UNK
     Route: 064
  2. ONDANSETRON [Suspect]
     Active Substance: ONDANSETRON
     Indication: FOETAL EXPOSURE DURING PREGNANCY
     Route: 064

REACTIONS (23)
  - Acute respiratory failure [Unknown]
  - Foetal exposure during pregnancy [Unknown]
  - Injury [Unknown]
  - Hypervolaemia [Unknown]
  - Inferior vena caval occlusion [Unknown]
  - Hypoxia [Unknown]
  - Patent ductus arteriosus [Unknown]
  - Pulmonary hypoplasia [Unknown]
  - Pulmonary artery stenosis congenital [Unknown]
  - Right ventricular hypertrophy [Unknown]
  - Emotional distress [Unknown]
  - Heart disease congenital [Unknown]
  - Anhedonia [Unknown]
  - Congenital anomaly [Unknown]
  - Feeding intolerance [Unknown]
  - Congenital pulmonary valve atresia [Unknown]
  - Cardiac failure [Unknown]
  - Pericardial effusion [Unknown]
  - Pain [Unknown]
  - Hypotension [Unknown]
  - Atrioventricular septal defect [Unknown]
  - Dextrocardia [Unknown]
  - Anxiety [Unknown]
